FAERS Safety Report 5073442-1 (Version None)
Quarter: 2006Q3

REPORT INFORMATION
  Report Type: 
  Country: None (occurrence: None)
  Receive Date: 20060803
  Receipt Date: 20060726
  Transmission Date: 20061208
  Serious: Yes (Hospitalization)
  Sender: FDA-Public Use
  Company Number: 2006090454

PATIENT
  Age: 68 Year
  Sex: Female

DRUGS (6)
  1. AZULFIDINE EN-TABS [Suspect]
     Indication: RHEUMATOID ARTHRITIS
     Dosage: 1000 MG (DAILY), ORAL
     Route: 048
     Dates: end: 20060531
  2. SULFASALAZINE [Suspect]
     Indication: DRUG USE FOR UNKNOWN INDICATION
     Dosage: 500 MG (DAILY), ORAL
     Route: 048
     Dates: start: 20050709, end: 20060531
  3. NORVASC [Concomitant]
  4. PERSANTIN [Concomitant]
  5. KREMEZIN (CHARCOAL, ACTIVATED) [Concomitant]
  6. AZUCURENIN S (LEVOGLUTAMIDE, SODIUM GUALENATE) [Concomitant]

REACTIONS (4)
  - CONSTIPATION [None]
  - DRUG EFFECT DECREASED [None]
  - FAECES HARD [None]
  - LARGE INTESTINE PERFORATION [None]
